FAERS Safety Report 24991026 (Version 1)
Quarter: 2025Q1

REPORT INFORMATION
  Report Type: Spontaneous
  Country: JP (occurrence: JP)
  Receive Date: 20250220
  Receipt Date: 20250220
  Transmission Date: 20250408
  Serious: Yes (Other)
  Sender: ASTELLAS
  Company Number: JP-ASTELLAS-2025-AER-009038

PATIENT
  Age: 50 Year
  Sex: Male

DRUGS (3)
  1. PROGRAF [Interacting]
     Active Substance: TACROLIMUS
     Indication: Renal transplant
     Dosage: 1 MG IN THE MORNING AND 0.5 MG IN THE EVENING
     Route: 048
  2. PAXLOVID [Interacting]
     Active Substance: NIRMATRELVIR\RITONAVIR
     Indication: COVID-19
     Route: 048
  3. CELLCEPT [Concomitant]
     Active Substance: MYCOPHENOLATE MOFETIL
     Indication: Product used for unknown indication
     Route: 048

REACTIONS (4)
  - Immunosuppressant drug level increased [Recovering/Resolving]
  - Renal disorder [Unknown]
  - COVID-19 [Unknown]
  - Drug interaction [Unknown]

NARRATIVE: CASE EVENT DATE: 20241201
